FAERS Safety Report 19481321 (Version 2)
Quarter: 2021Q3

REPORT INFORMATION
  Report Type: Spontaneous
  Country: PT (occurrence: PT)
  Receive Date: 20210701
  Receipt Date: 20210720
  Transmission Date: 20211014
  Serious: Yes (Life-Threatening, Hospitalization, Other)
  Sender: FDA-Public Use
  Company Number: PT-ASTRAZENECA-2021A564581

PATIENT
  Age: 24500 Day
  Sex: Male
  Weight: 77 kg

DRUGS (7)
  1. METFORMIN VILDAGLIPTIN [Concomitant]
     Indication: DIABETES MELLITUS
     Dosage: 500 MG 1 TABLET FOR BREAKFAST AND 1 TABLET FOR DINNER
     Route: 065
  2. ATORVASTATIN [Concomitant]
     Active Substance: ATORVASTATIN
     Indication: DYSLIPIDAEMIA
     Dosage: 10 MG 1 TABLET AT DINNER
     Route: 065
  3. RAMIPRIL/HCTZ [Concomitant]
     Active Substance: HYDROCHLOROTHIAZIDE\RAMIPRIL
     Indication: HYPERTENSION
     Dosage: 5 MG 1 TABLET FOR BREAKFAST
     Route: 065
  4. LERCANIDIPINE [Concomitant]
     Active Substance: LERCANIDIPINE
     Indication: HYPERTENSION
     Dosage: 10 MG 1 TABLET AT DINNER
     Route: 065
  5. ALLOPURINOL. [Concomitant]
     Active Substance: ALLOPURINOL
     Indication: HYPERURICAEMIA
     Dosage: 300MG 1 CP AT DINNER
     Route: 065
  6. NIMESULIDE [Concomitant]
     Active Substance: NIMESULIDE
     Route: 065
  7. FORXIGA [Suspect]
     Active Substance: DAPAGLIFLOZIN
     Indication: TYPE 2 DIABETES MELLITUS
     Route: 048
     Dates: start: 20210421, end: 20210515

REACTIONS (2)
  - Diabetic ketoacidosis [Recovered/Resolved]
  - Renal disorder [Recovered/Resolved]

NARRATIVE: CASE EVENT DATE: 20210515
